FAERS Safety Report 5276634-1 (Version None)
Quarter: 2007Q1

REPORT INFORMATION
  Report Type: 
  Country: None (occurrence: None)
  Receive Date: 20070327
  Receipt Date: 20070315
  Transmission Date: 20070707
  Serious: Yes (Other)
  Sender: FDA-Public Use
  Company Number: US-JNJFOC-20070303810

PATIENT
  Sex: Female

DRUGS (9)
  1. INFLIXIMAB [Suspect]
     Indication: RHEUMATOID ARTHRITIS
     Route: 042
  2. PREDNISONE [Concomitant]
  3. METHOTREXATE [Concomitant]
  4. PREVACID [Concomitant]
  5. FOLIC ACID [Concomitant]
  6. MOTRIN [Concomitant]
  7. DARVOCET [Concomitant]
  8. LORTAB [Concomitant]
  9. RITUXAN [Concomitant]

REACTIONS (1)
  - SKIN CANCER [None]
